FAERS Safety Report 9338424 (Version 2)
Quarter: 2013Q3

REPORT INFORMATION
  Report Type: Spontaneous
  Country: US (occurrence: US)
  Receive Date: 20130610
  Receipt Date: 20130711
  Transmission Date: 20140515
  Serious: No
  Sender: FDA-Public Use
  Company Number: US-PFIZER INC-2013172331

PATIENT
  Age: 59 Year
  Sex: Female

DRUGS (7)
  1. XELJANZ [Suspect]
     Indication: RHEUMATOID ARTHRITIS
     Dosage: 5 MG, 2X/DAY
     Route: 048
  2. ALLEGRA [Concomitant]
     Dosage: 180 MG, UNK
  3. FOLIC ACID [Concomitant]
     Dosage: 1 MG, UNK
  4. MAXZIDE [Concomitant]
     Dosage: 75 MG TRIAMTERENE/50 MG HYDROCHLOROTHIAZIDE
  5. ESTRADIOL [Concomitant]
     Dosage: 1 MG, UNK
  6. AMITRIPTYLINE HYDROCHLORIDE [Concomitant]
     Dosage: 25 MG, UNK
  7. MULTIVITAMINS [Concomitant]
     Dosage: UNK

REACTIONS (2)
  - Upper respiratory tract infection [Recovered/Resolved]
  - Malaise [Recovered/Resolved]
